FAERS Safety Report 21530089 (Version 4)
Quarter: 2025Q3

REPORT INFORMATION
  Report Type: Report from Study
  Country: US (occurrence: US)
  Receive Date: 20221031
  Receipt Date: 20250906
  Transmission Date: 20251021
  Serious: Yes (Other)
  Sender: TAKEDA
  Company Number: US-TAKEDA-US202014442

PATIENT
  Sex: Female

DRUGS (3)
  1. HUMAN IMMUNOGLOBULIN G [Suspect]
     Active Substance: HUMAN IMMUNOGLOBULIN G
     Indication: Immunodeficiency common variable
     Dosage: 40 GRAM, Q2WEEKS
  2. HUMAN IMMUNOGLOBULIN G [Suspect]
     Active Substance: HUMAN IMMUNOGLOBULIN G
     Indication: Primary immunodeficiency syndrome
     Dosage: 42.5 GRAM,Q2WEEKS
  3. HUMAN IMMUNOGLOBULIN G [Suspect]
     Active Substance: HUMAN IMMUNOGLOBULIN G

REACTIONS (8)
  - Upper limb fracture [Recovering/Resolving]
  - Infection [Recovered/Resolved]
  - Skin infection [Unknown]
  - Illness [Unknown]
  - Fall [Recovering/Resolving]
  - COVID-19 [Unknown]
  - Gene mutation [Unknown]
  - Influenza [Unknown]

NARRATIVE: CASE EVENT DATE: 20170101
